FAERS Safety Report 6073239-X (Version None)
Quarter: 2009Q1

REPORT INFORMATION
  Report Type: 
  Country: None (occurrence: None)
  Receive Date: 20090211
  Receipt Date: 20081223
  Transmission Date: 20090719
  Serious: No
  Sender: FDA-Public Use
  Company Number: A0759741A

PATIENT
  Age: 69 Year
  Sex: Male

DRUGS (2)
  1. ALTABAX [Suspect]
     Indication: PRURITUS
     Dosage: 1APP SINGLE DOSE
     Route: 061
     Dates: start: 20081114, end: 20081114
  2. BLOOD PRESSURE MEDICATION [Concomitant]

REACTIONS (2)
  - BURNING SENSATION [None]
  - RASH [None]
